FAERS Safety Report 10789649 (Version 1)
Quarter: 2015Q1

REPORT INFORMATION
  Report Type: Spontaneous
  Country: US (occurrence: None)
  Receive Date: 20150211
  Receipt Date: 20150211
  Transmission Date: 20150721
  Serious: Yes (Life-Threatening)
  Sender: FDA-Public Use
  Company Number: None

PATIENT
  Age: 33 Year
  Sex: Female
  Weight: 46.27 kg

DRUGS (1)
  1. SEPTRA DS [Suspect]
     Active Substance: SULFAMETHOXAZOLE\TRIMETHOPRIM
     Indication: ABSCESS
     Dosage: TAKEN BY MOUTH
     Dates: start: 20150209, end: 20150209

REACTIONS (6)
  - Palpitations [None]
  - Vision blurred [None]
  - Vomiting [None]
  - Asthenia [None]
  - Flushing [None]
  - Tremor [None]

NARRATIVE: CASE EVENT DATE: 20150209
